FAERS Safety Report 15355648 (Version 1)
Quarter: 2018Q3

REPORT INFORMATION
  Report Type: Spontaneous
  Country: AU (occurrence: AU)
  Receive Date: 20180906
  Receipt Date: 20180906
  Transmission Date: 20181010
  Serious: Yes (Death, Other)
  Sender: FDA-Public Use
  Company Number: AU-BAYER-2018-162564

PATIENT
  Age: 82 Year
  Sex: Female
  Weight: 63 kg

DRUGS (8)
  1. VITAMIN D [Concomitant]
     Active Substance: CHOLECALCIFEROL
  2. PANADEINE FORTE [Concomitant]
     Active Substance: ACETAMINOPHEN\CODEINE PHOSPHATE
  3. GADOVIST [Suspect]
     Active Substance: GADOBUTROL
     Indication: ABDOMINAL PAIN UPPER
  4. ZANIDIP [Suspect]
     Active Substance: LERCANIDIPINE HYDROCHLORIDE
     Dosage: 10 MG, UNK
     Dates: start: 20170324
  5. MICARDIS [Suspect]
     Active Substance: TELMISARTAN
     Dosage: 80 MG, UNK
  6. CALTRATE [CALCIUM CARBONATE,COLECALCIFEROL] [Concomitant]
  7. GADOVIST [Suspect]
     Active Substance: GADOBUTROL
     Indication: NUCLEAR MAGNETIC RESONANCE IMAGING
     Dosage: 7.5 ML, ONCE
     Dates: start: 20170324, end: 20170324
  8. ATENOLOL. [Concomitant]
     Active Substance: ATENOLOL
     Dosage: 50 MG, UNK

REACTIONS (23)
  - Cardiac arrest [Fatal]
  - Anuria [None]
  - Pallor [None]
  - Presyncope [None]
  - Somnolence [None]
  - Dyspnoea [Fatal]
  - Peripheral ischaemia [None]
  - Peripheral circulatory failure [None]
  - Hypotension [Fatal]
  - Nausea [None]
  - Pallor [None]
  - Wheezing [None]
  - Rales [Fatal]
  - Acute kidney injury [None]
  - Hyperkalaemia [None]
  - Lactic acidosis [None]
  - Bradycardia [None]
  - Pulmonary oedema [Fatal]
  - Peripheral artery thrombosis [None]
  - Cyanosis [Fatal]
  - Multiple organ dysfunction syndrome [Fatal]
  - Pulse absent [None]
  - Contrast media reaction [Fatal]

NARRATIVE: CASE EVENT DATE: 20170324
